FAERS Safety Report 7109813-9 (Version None)
Quarter: 2010Q4

REPORT INFORMATION
  Report Type: 
  Country: None (occurrence: None)
  Receive Date: 20101118
  Receipt Date: 20101109
  Transmission Date: 20110411
  Serious: Yes (Other)
  Sender: FDA-Public Use
  Company Number: JP-ASTRAZENECA-2004AP03129

PATIENT
  Age: 29 Year
  Sex: Female

DRUGS (5)
  1. CARBOCAIN [Suspect]
     Indication: LOCAL ANAESTHESIA
     Route: 008
  2. CARBOCAIN [Suspect]
     Indication: BACK PAIN
     Route: 008
  3. DEXAMETHASONE [Suspect]
     Indication: LOCAL ANAESTHESIA
     Route: 008
  4. DEXAMETHASONE [Suspect]
     Indication: BACK PAIN
     Route: 008
  5. CHLORHEXIDINE GLUCONATE [Concomitant]
     Route: 003

REACTIONS (2)
  - ANAPHYLACTIC SHOCK [None]
  - CARDIOMYOPATHY [None]
